FAERS Safety Report 10649678 (Version 1)
Quarter: 2014Q4

REPORT INFORMATION
  Report Type: Spontaneous
  Country: DE (occurrence: DE)
  Receive Date: 20141212
  Receipt Date: 20141212
  Transmission Date: 20150529
  Serious: Yes (Other)
  Sender: FDA-Public Use
  Company Number: DE-ACTAVIS-2014-26384

PATIENT
  Age: 82 Year
  Sex: Male
  Weight: 60 kg

DRUGS (2)
  1. CEFUROXIM-ACTAVIS [Suspect]
     Active Substance: CEFUROXIME
     Indication: ANTIBIOTIC PROPHYLAXIS
  2. CEFUROXIM-ACTAVIS [Suspect]
     Active Substance: CEFUROXIME
     Indication: OFF LABEL USE
     Dosage: 1 MG/ML
     Route: 031
     Dates: start: 20141121

REACTIONS (2)
  - Off label use [Not Recovered/Not Resolved]
  - Corneal oedema [Not Recovered/Not Resolved]

NARRATIVE: CASE EVENT DATE: 20141121
